FAERS Safety Report 9868589 (Version 1)
Quarter: 2014Q1

REPORT INFORMATION
  Report Type: Spontaneous
  Country: TR (occurrence: TR)
  Receive Date: 20140204
  Receipt Date: 20140204
  Transmission Date: 20141002
  Serious: Yes (Hospitalization)
  Sender: FDA-Public Use
  Company Number: PHHY2014TR011123

PATIENT
  Age: 55 Year
  Sex: Female

DRUGS (5)
  1. PRAMIPEXOLE [Suspect]
     Indication: PARKINSON^S DISEASE
     Dosage: 4.5 MG, UNK
  2. PRAMIPEXOLE [Suspect]
     Dosage: 3 MG, UNK
  3. LEVODOPA+CARBIDOPA [Suspect]
     Indication: PARKINSON^S DISEASE
     Dosage: 400 MG, PER DAY
     Dates: start: 2010
  4. LEVODOPA [Suspect]
     Indication: PARKINSON^S DISEASE
     Dosage: 1 G, PER DAY
  5. RASAGILINE [Concomitant]
     Indication: PARKINSON^S DISEASE
     Dosage: 1 MG, UNK

REACTIONS (5)
  - Pleurothotonus [Recovering/Resolving]
  - Gait disturbance [Recovering/Resolving]
  - Posture abnormal [Recovering/Resolving]
  - Balance disorder [Recovering/Resolving]
  - Drug ineffective [Unknown]
